FAERS Safety Report 5404793-6 (Version None)
Quarter: 2007Q3

REPORT INFORMATION
  Report Type: 
  Country: None (occurrence: None)
  Receive Date: 20070803
  Receipt Date: 20070726
  Transmission Date: 20080115
  Serious: Yes (Hospitalization)
  Sender: FDA-Public Use
  Company Number: PHBS2007JP11004

PATIENT
  Age: 7 Year
  Sex: Female
  Weight: 25 kg

DRUGS (4)
  1. NEORAL [Suspect]
     Indication: NEPHROTIC SYNDROME
     Dosage: 160 MG/D
     Route: 048
     Dates: start: 20031201, end: 20061003
  2. PREDONINE [Suspect]
     Indication: NEPHROTIC SYNDROME
     Dosage: 30 MG/D
     Route: 048
     Dates: start: 20030101
  3. BONALON [Concomitant]
     Dosage: 5 MG/D
     Route: 048
     Dates: start: 20031201
  4. ALFAROL [Concomitant]
     Dosage: 0.5 UG/D
     Route: 048
     Dates: start: 20031201

REACTIONS (15)
  - ANTITHROMBIN III DECREASED [None]
  - CAROTID ARTERY STENOSIS [None]
  - CAROTID ARTERY THROMBOSIS [None]
  - CEREBRAL INFARCTION [None]
  - DISEASE RECURRENCE [None]
  - DYSARTHRIA [None]
  - HYPERCOAGULATION [None]
  - HYPOALBUMINAEMIA [None]
  - MUSCLE SPASMS [None]
  - MUSCULAR WEAKNESS [None]
  - NEPHROPATHY TOXIC [None]
  - NEPHROTIC SYNDROME [None]
  - PROTEINURIA [None]
  - SPEECH DISORDER [None]
  - UPPER RESPIRATORY TRACT INFECTION [None]
